FAERS Safety Report 17115861 (Version 1)
Quarter: 2019Q4

REPORT INFORMATION
  Report Type: Spontaneous
  Country: FR (occurrence: FR)
  Receive Date: 20191205
  Receipt Date: 20191205
  Transmission Date: 20200122
  Serious: Yes (Hospitalization)
  Sender: FDA-Public Use
  Company Number: FR-SA-2019SA160494

PATIENT
  Age: 37 Year
  Sex: Female
  Weight: 79 kg

DRUGS (4)
  1. LOVENOX [Suspect]
     Active Substance: ENOXAPARIN SODIUM
     Indication: THROMBOSIS
  2. DOLIPRANE [Concomitant]
     Active Substance: ACETAMINOPHEN
     Dosage: UNK
  3. ANTADYS [Concomitant]
     Active Substance: FLURBIPROFEN
     Dosage: UNK
  4. LOVENOX [Suspect]
     Active Substance: ENOXAPARIN SODIUM
     Indication: VENOUS THROMBOSIS
     Dosage: 1 DF, QD
     Route: 065

REACTIONS (14)
  - Burning sensation [Unknown]
  - Injection site pain [Unknown]
  - Vulvovaginal pain [Unknown]
  - Abdominal pain [Unknown]
  - Adenomyosis [Recovering/Resolving]
  - Discharge [Unknown]
  - Anal haemorrhage [Unknown]
  - Endometriosis [Recovered/Resolved with Sequelae]
  - Vulvovaginal inflammation [Unknown]
  - Diarrhoea [Unknown]
  - Dysuria [Unknown]
  - Malaise [Unknown]
  - Vaginal haemorrhage [Unknown]
  - Bladder pain [Unknown]

NARRATIVE: CASE EVENT DATE: 201905
